APPROVED DRUG PRODUCT: PROMETHAZINE HYDROCHLORIDE
Active Ingredient: PROMETHAZINE HYDROCHLORIDE
Strength: 12.5MG
Dosage Form/Route: TABLET;ORAL
Application: A084176 | Product #002
Applicant: SANDOZ INC
Approved: May 22, 2009 | RLD: No | RS: No | Type: DISCN